FAERS Safety Report 6305272-4 (Version None)
Quarter: 2009Q3

REPORT INFORMATION
  Report Type: 
  Country: None (occurrence: None)
  Receive Date: 20090810
  Receipt Date: 20090810
  Transmission Date: 20100115
  Serious: Yes (Other)
  Sender: FDA-Public Use
  Company Number: None

PATIENT
  Age: 76 Year
  Sex: Female
  Weight: 58.9676 kg

DRUGS (5)
  1. RECLAST [Suspect]
     Indication: OSTEOARTHRITIS
     Dosage: 5MG ONCE IV
     Route: 042
     Dates: start: 20090605
  2. RECLAST [Suspect]
     Indication: OSTEOPENIA
     Dosage: 5MG ONCE IV
     Route: 042
     Dates: start: 20090605
  3. INDERAL [Concomitant]
  4. ZOCOR [Concomitant]
  5. NEXIUM [Concomitant]

REACTIONS (4)
  - ARTHRALGIA [None]
  - ASTHENIA [None]
  - MYALGIA [None]
  - PYREXIA [None]
